FAERS Safety Report 5339554-X (Version None)
Quarter: 2007Q2

REPORT INFORMATION
  Report Type: 
  Country: None (occurrence: None)
  Receive Date: 20070405
  Receipt Date: 20061130
  Transmission Date: 20071010
  Serious: No
  Sender: FDA-Public Use
  Company Number: US200611005526

PATIENT
  Sex: Female

DRUGS (9)
  1. CYMBALTA [Suspect]
     Indication: DEPRESSION
     Dosage: 20 MG, DAILY (1/D)
     Dates: start: 20061106
  2. BUSPAR /AUS/ (BUSPIRONE HYDROCHLORIDE) [Concomitant]
  3. MOBIC [Concomitant]
  4. PREMARIN [Concomitant]
  5. SKELAXIN [Concomitant]
  6. PREGABALIN (PREGABALIN) [Concomitant]
  7. CALICUM (CALCIUM) [Concomitant]
  8. LYSINE (LYSINE) [Concomitant]
  9. ALLEGRA-D SLOW RELEASE (FEXOFENADINE HYDROCHLORIDE, PSEUDOEPHEDRINE HY [Concomitant]

REACTIONS (9)
  - DIARRHOEA [None]
  - FAECES PALE [None]
  - FATIGUE [None]
  - HEADACHE [None]
  - MIDDLE INSOMNIA [None]
  - NAUSEA [None]
  - NIGHTMARE [None]
  - SOMNOLENCE [None]
  - VERTIGO [None]
